FAERS Safety Report 19396662 (Version 7)
Quarter: 2022Q1

REPORT INFORMATION
  Report Type: Report from Study
  Country: PL (occurrence: PL)
  Receive Date: 20210609
  Receipt Date: 20220329
  Transmission Date: 20220423
  Serious: Yes (Life-Threatening, Hospitalization, Other)
  Sender: FDA-Public Use
  Company Number: PL-EXELIXIS-XL18421041092

PATIENT
  Age: 67 Year
  Sex: Male
  Weight: 66 kg

DRUGS (14)
  1. CABOZANTINIB [Suspect]
     Active Substance: CABOZANTINIB
     Indication: Renal cell carcinoma
     Dosage: 40 MG, QD
     Route: 048
     Dates: start: 20210329, end: 20210412
  2. CABOZANTINIB [Suspect]
     Active Substance: CABOZANTINIB
     Dosage: 20 MG, QD
     Route: 048
     Dates: start: 20210525, end: 20210601
  3. CABOZANTINIB [Suspect]
     Active Substance: CABOZANTINIB
     Dosage: 20 MG, QD
     Route: 048
     Dates: start: 20210617, end: 20210625
  4. CABOZANTINIB [Suspect]
     Active Substance: CABOZANTINIB
     Dosage: 20 MG, QOD
     Route: 048
     Dates: start: 20210718
  5. IPILIMUMAB [Suspect]
     Active Substance: IPILIMUMAB
     Indication: Renal cell carcinoma
     Dosage: 1 MG/KG, Q3WEEKS, 4 DOSES
     Route: 042
     Dates: start: 20210329, end: 20210412
  6. IPILIMUMAB [Suspect]
     Active Substance: IPILIMUMAB
     Dosage: 1 MG/KG, Q3WEEKS, 4 DOSES
     Route: 042
     Dates: start: 20210525, end: 20210617
  7. NIVOLUMAB [Suspect]
     Active Substance: NIVOLUMAB
     Indication: Renal cell carcinoma
     Dosage: 3 MG/KG, Q3WEEKS, 4 DOSES
     Route: 042
     Dates: start: 20210329, end: 20210412
  8. NIVOLUMAB [Suspect]
     Active Substance: NIVOLUMAB
     Dosage: 3 MG/KG, Q3WEEKS, 4 DOSES
     Route: 042
     Dates: start: 20210525
  9. PROPRANOLOL [Concomitant]
     Active Substance: PROPRANOLOL HYDROCHLORIDE
  10. ALLOPURINOL [Concomitant]
     Active Substance: ALLOPURINOL
  11. PREDNISONE [Concomitant]
     Active Substance: PREDNISONE
  12. DEXAMETHASONE [Concomitant]
     Active Substance: DEXAMETHASONE
  13. PANTOPRAZOLE [Concomitant]
     Active Substance: PANTOPRAZOLE
  14. HYDROCORTISONE [Concomitant]
     Active Substance: HYDROCORTISONE

REACTIONS (4)
  - Atrial fibrillation [Recovered/Resolved]
  - Colitis [Recovered/Resolved]
  - Epididymitis [Recovered/Resolved]
  - Hyperthyroidism [Recovering/Resolving]

NARRATIVE: CASE EVENT DATE: 20210525
